FAERS Safety Report 8257740-6 (Version None)
Quarter: 2012Q2

REPORT INFORMATION
  Report Type: 
  Country: None (occurrence: None)
  Receive Date: 20120404
  Receipt Date: 20120327
  Transmission Date: 20120825
  Serious: Yes (Hospitalization)
  Sender: FDA-Public Use
  Company Number: US-BIOGENIDEC-2012BI009570

PATIENT
  Age: 48 Year
  Sex: Female

DRUGS (2)
  1. AVONEX [Suspect]
     Indication: MULTIPLE SCLEROSIS
     Route: 030
     Dates: start: 20070510
  2. AVONEX [Suspect]
     Route: 030

REACTIONS (4)
  - MUSCULOSKELETAL DISORDER [None]
  - INJECTION SITE INFLAMMATION [None]
  - INJECTION SITE ATROPHY [None]
  - INJECTION SITE HAEMATOMA [None]
